FAERS Safety Report 22022580 (Version 1)
Quarter: 2023Q1

REPORT INFORMATION
  Report Type: Spontaneous
  Country: US (occurrence: US)
  Receive Date: 20230222
  Receipt Date: 20230222
  Transmission Date: 20230418
  Serious: Yes (Other)
  Sender: FDA-Public Use
  Company Number: US-009507513-2302USA005557

PATIENT
  Sex: Male

DRUGS (1)
  1. KEYTRUDA [Suspect]
     Active Substance: PEMBROLIZUMAB
     Indication: Bladder cancer
     Route: 042
     Dates: start: 20220504, end: 20220727

REACTIONS (4)
  - Renal failure [Not Recovered/Not Resolved]
  - Rash pruritic [Not Recovered/Not Resolved]
  - Skin mass [Not Recovered/Not Resolved]
  - Poor quality sleep [Not Recovered/Not Resolved]

NARRATIVE: CASE EVENT DATE: 20220101
